FAERS Safety Report 8060239-3 (Version None)
Quarter: 2012Q1

REPORT INFORMATION
  Report Type: 
  Country: None (occurrence: None)
  Receive Date: 20120120
  Receipt Date: 20120113
  Transmission Date: 20120608
  Serious: Yes (Other)
  Sender: FDA-Public Use
  Company Number: US-ABBOTT-12P-163-0893077-00

PATIENT
  Sex: Female
  Weight: 90.8 kg

DRUGS (4)
  1. NIASPAN [Suspect]
     Indication: PRODUCT USED FOR UNKNOWN INDICATION
     Dates: start: 20120112
  2. ASPIRIN [Concomitant]
     Indication: FLUSHING
  3. ASPIRIN [Concomitant]
     Indication: PROPHYLAXIS
     Dosage: 1/2 HOUR PRIOR TO NIASPAN; 1 IN 1 DAY
     Dates: start: 20111201
  4. NIASPAN [Suspect]
     Indication: PRODUCT USED FOR UNKNOWN INDICATION
     Dates: start: 20111201, end: 20120111

REACTIONS (6)
  - RASH [None]
  - RASH PRURITIC [None]
  - KNEE DEFORMITY [None]
  - FALL [None]
  - JOINT INJURY [None]
  - GAIT DISTURBANCE [None]
